FAERS Safety Report 8048676 (Version 2)
Quarter: 2012Q4

REPORT INFORMATION
  Report Type: 
  Country: DE (occurrence: DE)
  Receive Date: 20110722
  Receipt Date: 20120928
  Transmission Date: 20130627
  Serious: Yes (Death, Hospitalization, Other)
  Sender: FDA-Public Use
  Company Number: DE-RANBAXY-2011RR-46182

PATIENT
  Age: 58 Year
  Sex: Male

DRUGS (16)
  1. SERTRALINE [Suspect]
     Indication: PRODUCT USED FOR UNKNOWN INDICATION
     Dosage: 50 mg, qd
     Route: 048
     Dates: start: 20100527, end: 20100608
  2. SERTRALINE [Suspect]
     Indication: PRODUCT USED FOR UNKNOWN INDICATION
     Dosage: 100 mg, qd
     Route: 048
     Dates: start: 20100609, end: 20100707
  3. SERTRALINE [Suspect]
     Indication: PRODUCT USED FOR UNKNOWN INDICATION
     Dosage: 150 mg, qd
     Route: 048
     Dates: start: 20100708, end: 20100712
  4. SERTRALINE [Suspect]
     Indication: PRODUCT USED FOR UNKNOWN INDICATION
     Dosage: 200 mg, qd
     Route: 048
     Dates: start: 20100713, end: 20100804
  5. SERTRALINE [Suspect]
     Indication: PRODUCT USED FOR UNKNOWN INDICATION
     Dosage: 150 mg, qd
     Route: 048
     Dates: start: 20100805, end: 20100806
  6. SERTRALINE [Suspect]
     Indication: PRODUCT USED FOR UNKNOWN INDICATION
     Dosage: 100 mg, qd
     Route: 048
     Dates: start: 20100807
  7. SEROQUEL PROLONG [Suspect]
     Indication: PRODUCT USED FOR UNKNOWN INDICATION
     Dosage: 200-600 mg/d
     Route: 048
     Dates: start: 20100522, end: 20100602
  8. SEROQUEL PROLONG [Suspect]
     Dosage: 300 mg, qd
     Route: 048
     Dates: start: 20100602, end: 20100622
  9. SEROQUEL PROLONG [Suspect]
     Dosage: 400-600 mg/d
     Route: 048
     Dates: start: 20100622, end: 20100627
  10. SEROQUEL PROLONG [Suspect]
     Dosage: 800 mg, qd
     Route: 048
     Dates: start: 20100628, end: 20100804
  11. SEROQUEL PROLONG [Suspect]
     Dosage: 600-100 mg/d
     Route: 048
     Dates: start: 20100805, end: 20100811
  12. AKINETON RETARD [Suspect]
     Indication: PRODUCT USED FOR UNKNOWN INDICATION
     Dosage: 2 mg, qd
     Route: 048
     Dates: start: 20100625, end: 20100709
  13. AKINETON RETARD [Suspect]
     Indication: PRODUCT USED FOR UNKNOWN INDICATION
     Dosage: 4 mg, qd
     Dates: start: 20100710
  14. DIAZEPAM [Concomitant]
     Indication: PRODUCT USED FOR UNKNOWN INDICATION
     Dosage: 10 mg, qd
     Route: 048
     Dates: start: 20100624, end: 20100715
  15. DIAZEPAM [Concomitant]
     Dosage: 5 mg, qd
     Route: 048
     Dates: start: 20100716, end: 20100719
  16. DIAZEPAM [Concomitant]
     Dosage: 2.5 mg, qd
     Route: 048
     Dates: start: 20100720, end: 20100804

REACTIONS (1)
  - Delirium [Recovered/Resolved]
